FAERS Safety Report 13757178 (Version 1)
Quarter: 2017Q3

REPORT INFORMATION
  Report Type: Spontaneous
  Country: US (occurrence: US)
  Receive Date: 20170715
  Receipt Date: 20170715
  Transmission Date: 20171127
  Serious: Yes (Other)
  Sender: FDA-Public Use
  Company Number: US-AMGEN-USASP2017105256

PATIENT
  Age: 41 Year
  Sex: Female

DRUGS (8)
  1. XGEVA [Suspect]
     Active Substance: DENOSUMAB
     Indication: BREAST CANCER FEMALE
     Dosage: UNK UNK, UNK
     Route: 065
  2. MARINOL [Concomitant]
     Active Substance: DRONABINOL
  3. AMBIEN [Concomitant]
     Active Substance: ZOLPIDEM TARTRATE
  4. PERCOCET [Concomitant]
     Active Substance: ACETAMINOPHEN\OXYCODONE HYDROCHLORIDE
  5. ATIVAN [Concomitant]
     Active Substance: LORAZEPAM
  6. IBRANCE [Suspect]
     Active Substance: PALBOCICLIB
     Indication: BREAST CANCER FEMALE
     Dosage: 125 MG, QD (1 CAPSULE DAILY FOR 21 DAYS, THEN OFF 7 DAYS AND REPEAT ON 4 WEEK CYCLE)
     Route: 048
  7. CALCIUM 600+D [Concomitant]
     Active Substance: CALCIUM\VITAMIN D
  8. FASLODEX [Concomitant]
     Active Substance: FULVESTRANT
     Indication: BREAST CANCER FEMALE

REACTIONS (2)
  - Breast cancer [Unknown]
  - Gastrointestinal infection [Unknown]
